FAERS Safety Report 8621605-8 (Version None)
Quarter: 2012Q3

REPORT INFORMATION
  Report Type: 
  Country: None (occurrence: None)
  Receive Date: 20120820
  Receipt Date: 20120820
  Transmission Date: 20120928
  Serious: Yes (Life-Threatening, Hospitalization)
  Sender: FDA-Public Use
  Company Number: None

PATIENT
  Age: 68 Year
  Sex: Female

DRUGS (1)
  1. RIBAVIRIN [Suspect]
     Dosage: 400MG BID PO
     Route: 048
     Dates: start: 20120307

REACTIONS (2)
  - COUGH [None]
  - ANAEMIA [None]
